FAERS Safety Report 22336964 (Version 2)
Quarter: 2023Q2

REPORT INFORMATION
  Report Type: Spontaneous
  Country: DE (occurrence: DE)
  Receive Date: 20230518
  Receipt Date: 20230526
  Transmission Date: 20230721
  Serious: Yes (Other)
  Sender: FDA-Public Use
  Company Number: None

PATIENT
  Sex: Female

DRUGS (3)
  1. AMOXICILLIN\CLAVULANIC ACID [Suspect]
     Active Substance: AMOXICILLIN\CLAVULANIC ACID
     Indication: Product used for unknown indication
     Dosage: 3X1
  2. ASCORBIC ACID [Suspect]
     Active Substance: ASCORBIC ACID
     Indication: Product used for unknown indication
     Dosage: 40.0
  3. DIMETHYL SULFOXIDE [Suspect]
     Active Substance: DIMETHYL SULFOXIDE
     Indication: Product used for unknown indication
     Route: 042

REACTIONS (6)
  - Acute kidney injury [Unknown]
  - Ileus paralytic [Unknown]
  - Hypophagia [Unknown]
  - Gastrointestinal motility disorder [Unknown]
  - Prescription drug used without a prescription [Unknown]
  - Off label use [Unknown]
